FAERS Safety Report 12448151 (Version 1)
Quarter: 2016Q2

REPORT INFORMATION
  Report Type: Spontaneous
  Country: DE (occurrence: DE)
  Receive Date: 20160608
  Receipt Date: 20160608
  Transmission Date: 20160815
  Serious: Yes (Hospitalization)
  Sender: FDA-Public Use
  Company Number: GXKR2016DE002597

PATIENT

DRUGS (14)
  1. AMIODARONE [Concomitant]
     Active Substance: AMIODARONE
     Indication: PRODUCT USED FOR UNKNOWN INDICATION
     Dosage: DAILY DOSE: 200 MG MILLIGRAM(S) EVERY DAY
     Route: 048
  2. ATORVASTATIN [Concomitant]
     Active Substance: ATORVASTATIN
     Indication: PRODUCT USED FOR UNKNOWN INDICATION
     Dosage: SEIT WOCHEN
     Route: 048
  3. PIPAMPERONE [Suspect]
     Active Substance: PIPAMPERONE
     Route: 048
     Dates: start: 20141015
  4. MIRTAZAPINE. [Suspect]
     Active Substance: MIRTAZAPINE
     Dosage: UNK MG, UNK
     Route: 048
     Dates: start: 20141015
  5. BISOPROLOL [Suspect]
     Active Substance: BISOPROLOL
     Indication: PRODUCT USED FOR UNKNOWN INDICATION
     Dosage: DAILY DOSE: 2.5 MG MILLIGRAM(S) EVERY DAY
     Route: 048
     Dates: end: 20141015
  6. MIRTAZAPINE. [Suspect]
     Active Substance: MIRTAZAPINE
     Dosage: DAILY DOSE: 7.5 MG MILLIGRAM(S) EVERY DAY
     Route: 048
     Dates: start: 20141013, end: 20141014
  7. DONEPEZIL. [Concomitant]
     Active Substance: DONEPEZIL
     Indication: PRODUCT USED FOR UNKNOWN INDICATION
     Dosage: DAILY DOSE: 10 MG MILLIGRAM(S) EVERY DAY
     Route: 048
  8. TORASEMIDE [Suspect]
     Active Substance: TORSEMIDE
     Indication: PRODUCT USED FOR UNKNOWN INDICATION
     Dosage: DAILY DOSE: 5 MG MILLIGRAM(S) EVERY DAY
     Route: 048
     Dates: end: 20141015
  9. PIPAMPERONE [Suspect]
     Active Substance: PIPAMPERONE
     Route: 048
     Dates: start: 20141016
  10. PIPAMPERONE [Suspect]
     Active Substance: PIPAMPERONE
     Indication: PRODUCT USED FOR UNKNOWN INDICATION
     Route: 048
     Dates: start: 20141014
  11. MIRTAZAPINE. [Suspect]
     Active Substance: MIRTAZAPINE
     Indication: PRODUCT USED FOR UNKNOWN INDICATION
     Dosage: DAILY DOSE: 7.5 MG MILLIGRAM(S) EVERY DAY
     Route: 048
     Dates: start: 20141008, end: 20141009
  12. MIRTAZAPINE. [Suspect]
     Active Substance: MIRTAZAPINE
     Dosage: DAILY DOSE: 15 MG MILLIGRAM(S) EVERY DAY
     Route: 048
     Dates: start: 20141010, end: 20141012
  13. MIRTAZAPINE. [Suspect]
     Active Substance: MIRTAZAPINE
     Dosage: 15 MG, UNK
     Route: 048
     Dates: start: 20141016
  14. BISOPROLOL [Suspect]
     Active Substance: BISOPROLOL
     Dosage: DAILY DOSE: 2.5 MG MILLIGRAM(S) EVERY DAY
     Route: 048
     Dates: start: 20141025

REACTIONS (1)
  - Circulatory collapse [Recovered/Resolved]

NARRATIVE: CASE EVENT DATE: 20141015
